FAERS Safety Report 6236987-4 (Version None)
Quarter: 2009Q2

REPORT INFORMATION
  Report Type: 
  Country: None (occurrence: None)
  Receive Date: 20090619
  Receipt Date: 20090310
  Transmission Date: 20091009
  Serious: No
  Sender: FDA-Public Use
  Company Number: US-ASTRAZENECA-2009UW06399

PATIENT
  Age: 51 Year
  Sex: Male
  Weight: 136.1 kg

DRUGS (7)
  1. SYMBICORT [Suspect]
     Dosage: 2 PUFFS
     Route: 055
  2. ALBUTEROL [Concomitant]
  3. LISINOPRIL [Concomitant]
  4. DICLOFENAC [Concomitant]
  5. METFORMIN HCL [Concomitant]
  6. ERYTHROMYCIN [Concomitant]
  7. CLINDAMYCIN [Concomitant]

REACTIONS (2)
  - INFLUENZA [None]
  - UPPER RESPIRATORY TRACT INFECTION [None]
